FAERS Safety Report 5631298-X (Version None)
Quarter: 2008Q1

REPORT INFORMATION
  Report Type: 
  Country: None (occurrence: None)
  Receive Date: 20080214
  Receipt Date: 20080201
  Transmission Date: 20080703
  Serious: Yes (Hospitalization)
  Sender: FDA-Public Use
  Company Number: 2007BI025185

PATIENT
  Age: 51 Year
  Sex: Male

DRUGS (1)
  1. AVONEX [Suspect]
     Indication: MULTIPLE SCLEROSIS
     Dosage: 1.1 UG; IM
     Route: 030
     Dates: start: 20060301

REACTIONS (7)
  - ACCIDENT AT WORK [None]
  - BACK INJURY [None]
  - BACK PAIN [None]
  - NOSOCOMIAL INFECTION [None]
  - PNEUMONIA [None]
  - STAPHYLOCOCCAL INFECTION [None]
  - VIRAL INFECTION [None]
